FAERS Safety Report 9828549 (Version 1)
Quarter: 2014Q1

REPORT INFORMATION
  Report Type: Report from Study
  Country: US (occurrence: US)
  Receive Date: 20140117
  Receipt Date: 20140117
  Transmission Date: 20141002
  Serious: Yes (Other)
  Sender: FDA-Public Use
  Company Number: US-ABBVIE-14P-163-1187876-00

PATIENT
  Age: 39 Year
  Sex: Female
  Weight: 57.2 kg

DRUGS (7)
  1. HUMIRA [Suspect]
     Indication: CROHN^S DISEASE
     Dates: start: 201303, end: 201307
  2. HUMIRA [Suspect]
     Dates: start: 201307, end: 201311
  3. METHOTREXATE [Concomitant]
     Indication: CROHN^S DISEASE
     Dates: start: 201308, end: 201311
  4. PROTONIX [Concomitant]
     Indication: GASTROOESOPHAGEAL REFLUX DISEASE
  5. ESTROGEN [Concomitant]
     Indication: POSTMENOPAUSE
  6. PROGESTERONE [Concomitant]
     Indication: POSTMENOPAUSE
  7. SYNTHROID [Concomitant]
     Indication: HYPOTHYROIDISM

REACTIONS (3)
  - Fistula [Not Recovered/Not Resolved]
  - Rectal abscess [Not Recovered/Not Resolved]
  - Crohn^s disease [Unknown]
